FAERS Safety Report 5707319-2 (Version None)
Quarter: 2008Q2

REPORT INFORMATION
  Report Type: 
  Country: None (occurrence: None)
  Receive Date: 20080416
  Receipt Date: 20080407
  Transmission Date: 20081010
  Serious: Yes (Death)
  Sender: FDA-Public Use
  Company Number: PHHY2008JP03534

PATIENT
  Age: 48 Year

DRUGS (2)
  1. SANDIMMUNE [Suspect]
     Indication: STEM CELL TRANSPLANT
     Dosage: 3 MG/KG/DAY
     Route: 041
     Dates: start: 20080220
  2. SANDIMMUNE [Suspect]
     Dosage: DOSE INCREASED BY 5/3
     Route: 041

REACTIONS (4)
  - BLOOD BILIRUBIN INCREASED [None]
  - DRUG LEVEL INCREASED [None]
  - JAUNDICE [None]
  - PNEUMONIA [None]
